FAERS Safety Report 17575515 (Version 1)
Quarter: 2020Q1

REPORT INFORMATION
  Report Type: Spontaneous
  Country: FR (occurrence: FR)
  Receive Date: 20200324
  Receipt Date: 20200324
  Transmission Date: 20200409
  Serious: Yes (Other)
  Sender: FDA-Public Use
  Company Number: FR-BAYER-2020-047045

PATIENT
  Age: 36 Year
  Sex: Female

DRUGS (3)
  1. PERINDOPRIL [Concomitant]
     Active Substance: PERINDOPRIL
     Indication: HYPERTENSION
     Dosage: 2 DF, QD
     Route: 048
  2. CERAZETTE [CEFALORIDINE] [Concomitant]
     Active Substance: CEPHALORIDINE
     Indication: CONTRACEPTION
     Dosage: 1 DF, QD
     Route: 048
  3. ALEVE [Suspect]
     Active Substance: NAPROXEN SODIUM
     Indication: INFECTION
     Dosage: INCONNUE
     Route: 048
     Dates: start: 201603, end: 201603

REACTIONS (1)
  - Behcet^s syndrome [Recovered/Resolved]

NARRATIVE: CASE EVENT DATE: 201603
